FAERS Safety Report 7496231-7 (Version None)
Quarter: 2011Q2

REPORT INFORMATION
  Report Type: 
  Country: None (occurrence: None)
  Receive Date: 20110523
  Receipt Date: 20110513
  Transmission Date: 20111010
  Serious: Yes (Other)
  Sender: FDA-Public Use
  Company Number: PHFR2011GB02838

PATIENT
  Sex: Male

DRUGS (2)
  1. DESFERAL [Suspect]
     Indication: IRON OVERLOAD
     Dosage: 6 G, QD
  2. DESFERAL [Suspect]
     Dosage: 3 G, QD

REACTIONS (3)
  - DRUG INEFFECTIVE [None]
  - HEPATIC FAILURE [None]
  - CARDIAC FAILURE [None]
